FAERS Safety Report 7921153-4 (Version None)
Quarter: 2011Q4

REPORT INFORMATION
  Report Type: 
  Country: None (occurrence: None)
  Receive Date: 20111117
  Receipt Date: 20111109
  Transmission Date: 20120403
  Serious: Yes (Other)
  Sender: FDA-Public Use
  Company Number: CA-PURDUE-CAN-2011-0002071

PATIENT
  Sex: Male
  Weight: 68 kg

DRUGS (2)
  1. BUPRENORPHINE [Suspect]
     Dosage: 20 MCG, Q1H
     Route: 062
  2. BUPRENORPHINE [Suspect]
     Indication: PRODUCT USED FOR UNKNOWN INDICATION
     Dosage: 10 MCG, Q1H
     Route: 062

REACTIONS (5)
  - PRURITUS [None]
  - PEMPHIGOID [None]
  - PEMPHIGUS [None]
  - BLISTER [None]
  - RASH [None]
